FAERS Safety Report 10014258 (Version 2)
Quarter: 2014Q2

REPORT INFORMATION
  Report Type: Spontaneous
  Country: AU (occurrence: AU)
  Receive Date: 20140317
  Receipt Date: 20140410
  Transmission Date: 20141212
  Serious: Yes (Other)
  Sender: FDA-Public Use
  Company Number: AU-AMGEN-AUSSP2014017479

PATIENT
  Age: 82 Year
  Sex: Female

DRUGS (3)
  1. PROLIA [Suspect]
     Indication: OSTEOPOROSIS POSTMENOPAUSAL
     Dosage: 60 MG, Q6MO
     Route: 065
     Dates: start: 20131009
  2. CARTIA                             /00002701/ [Concomitant]
  3. NOLEN [Concomitant]

REACTIONS (5)
  - Coeliac disease [Unknown]
  - Cow^s milk intolerance [Unknown]
  - Toothache [Unknown]
  - Abdominal discomfort [Unknown]
  - Dry eye [Unknown]
